FAERS Safety Report 8370450-X (Version None)
Quarter: 2012Q2

REPORT INFORMATION
  Report Type: 
  Country: None (occurrence: None)
  Receive Date: 20120518
  Receipt Date: 20120511
  Transmission Date: 20120825
  Serious: No
  Sender: FDA-Public Use
  Company Number: JP-UCBSA-057417

PATIENT
  Age: 20 Year
  Sex: Female

DRUGS (1)
  1. KEPPRA [Suspect]
     Dosage: STRENGTH:500 MG
     Route: 048

REACTIONS (1)
  - IRON DEFICIENCY ANAEMIA [None]
